FAERS Safety Report 25379086 (Version 1)
Quarter: 2025Q2

REPORT INFORMATION
  Report Type: Spontaneous
  Country: US (occurrence: US)
  Receive Date: 20250530
  Receipt Date: 20250530
  Transmission Date: 20250716
  Serious: Yes (Other)
  Sender: MERCK SHARP & DOHME LLC
  Company Number: US-009507513-2289441

PATIENT
  Age: 77 Year
  Sex: Male

DRUGS (4)
  1. PEMBROLIZUMAB [Suspect]
     Active Substance: PEMBROLIZUMAB
     Indication: Melanoma recurrent
     Route: 065
  2. NIVOLUMAB [Suspect]
     Active Substance: NIVOLUMAB
     Indication: Desmoplastic melanoma
  3. NIVOLUMAB\RELATLIMAB [Suspect]
     Active Substance: NIVOLUMAB\RELATLIMAB
     Indication: Melanoma recurrent
     Dates: start: 2023, end: 2024
  4. TALIMOGENE LAHERPAREPVEC [Suspect]
     Active Substance: TALIMOGENE LAHERPAREPVEC
     Indication: Melanoma recurrent
     Route: 065
     Dates: start: 2024, end: 2024

REACTIONS (4)
  - Pemphigoid [Recovering/Resolving]
  - Drug interaction [Unknown]
  - Immune-mediated dermatitis [Recovered/Resolved]
  - Drug ineffective [Unknown]

NARRATIVE: CASE EVENT DATE: 20220101
